FAERS Safety Report 20728679 (Version 2)
Quarter: 2022Q2

REPORT INFORMATION
  Report Type: Spontaneous
  Country: IT (occurrence: IT)
  Receive Date: 20220420
  Receipt Date: 20220429
  Transmission Date: 20220721
  Serious: Yes (Hospitalization, Other)
  Sender: FDA-Public Use
  Company Number: IT-MINISAL02-859716

PATIENT
  Age: 35 Year
  Sex: Female

DRUGS (6)
  1. DIAZEPAM [Suspect]
     Active Substance: DIAZEPAM
     Indication: Affective disorder
     Dosage: 40 MILLILITER, TOTAL
     Route: 048
     Dates: start: 20220228, end: 20220228
  2. IBUPROFEN [Suspect]
     Active Substance: IBUPROFEN
     Indication: Product used for unknown indication
     Dosage: 18000 MILLIGRAM, TOTAL
     Route: 048
     Dates: start: 20220228, end: 20220228
  3. MIRTAZAPINE [Suspect]
     Active Substance: MIRTAZAPINE
     Indication: Affective disorder
     Dosage: 420 MILLIGRAM, TOTAL
     Route: 048
     Dates: start: 20220228, end: 20220228
  4. QUETIAPINE [Suspect]
     Active Substance: QUETIAPINE
     Indication: Personality disorder
     Dosage: 500 MILLIGRAM, TOTAL
     Route: 048
     Dates: start: 20220228, end: 20220228
  5. BRINTELLIX [Suspect]
     Active Substance: VORTIOXETINE HYDROBROMIDE
     Indication: Affective disorder
     Dosage: 20 DOSAGE FORM, TOTAL
     Route: 048
     Dates: start: 20220228, end: 20220228
  6. PROMAZINE HYDROCHLORIDE [Suspect]
     Active Substance: PROMAZINE HYDROCHLORIDE
     Indication: Affective disorder
     Dosage: 30 MILLILITER, TOTAL
     Route: 048
     Dates: start: 20220228, end: 20220228

REACTIONS (5)
  - Drug abuse [Recovered/Resolved]
  - Intentional self-injury [Recovered/Resolved]
  - Sopor [Recovered/Resolved]
  - Bradykinesia [Recovered/Resolved]
  - Bradyphrenia [Recovered/Resolved]

NARRATIVE: CASE EVENT DATE: 20220228
